FAERS Safety Report 7476943-1 (Version None)
Quarter: 2011Q2

REPORT INFORMATION
  Report Type: 
  Country: None (occurrence: None)
  Receive Date: 20110512
  Receipt Date: 20110428
  Transmission Date: 20111010
  Serious: Yes (Death)
  Sender: FDA-Public Use
  Company Number: US-BAYER-2011-037618

PATIENT
  Age: 52 Year
  Sex: Female

DRUGS (4)
  1. ALEVE (CAPLET) [Suspect]
     Indication: PAIN
     Dosage: 440 MG, ONCE
     Route: 048
     Dates: start: 20101015, end: 20101015
  2. MUCINEX DM [Concomitant]
     Dosage: 2 DF, UNK
     Route: 048
     Dates: start: 20101015
  3. COLD AND FLU MEDICATION-UNKNOWN [Concomitant]
     Indication: NASOPHARYNGITIS
  4. COLD AND FLU MEDICATION-UNKNOWN [Concomitant]
     Indication: NASAL CONGESTION

REACTIONS (1)
  - DEATH [None]
